FAERS Safety Report 4932735-6 (Version None)
Quarter: 2006Q1

REPORT INFORMATION
  Report Type: 
  Country: None (occurrence: None)
  Receive Date: 20060301
  Receipt Date: 20060301
  Transmission Date: 20060701
  Serious: Yes (Other)
  Sender: FDA-Public Use
  Company Number: None

PATIENT
  Age: 17 Year
  Sex: Male

DRUGS (2)
  1. CORICIDIN HBP COUGH + COLD (CHLORPHENIRAMINE MAL/DEX TABLETS [Suspect]
     Indication: DRUG ABUSER
     Dosage: ORAL
     Route: 048
     Dates: start: 20050101, end: 20050101
  2. ALCOHOL ORAL [Suspect]
     Indication: DRUG ABUSER
     Dates: start: 20050101, end: 20050101

REACTIONS (3)
  - DRUG ABUSER [None]
  - INTENTIONAL DRUG MISUSE [None]
  - LOSS OF CONSCIOUSNESS [None]
